FAERS Safety Report 24146733 (Version 2)
Quarter: 2024Q3

REPORT INFORMATION
  Report Type: Report from Study
  Country: US (occurrence: US)
  Receive Date: 20240729
  Receipt Date: 20240731
  Transmission Date: 20241017
  Serious: No
  Sender: AMGEN
  Company Number: US-AMGEN-USASP2024147629

PATIENT
  Age: 82 Year
  Sex: Female

DRUGS (4)
  1. REPATHA [Suspect]
     Active Substance: EVOLOCUMAB
     Indication: Blood cholesterol increased
     Dosage: 140 MILLIGRAM, Q2WK
     Route: 058
     Dates: start: 20240626
  2. OZEMPIC [Concomitant]
     Active Substance: SEMAGLUTIDE
     Indication: Diabetes mellitus
     Dosage: 4 MILLIGRAM
     Dates: start: 2023
  3. PLAVIX [Concomitant]
     Active Substance: CLOPIDOGREL BISULFATE
     Indication: Stent placement
     Dosage: 75 MILLIGRAM
     Dates: start: 202406
  4. DUPIXENT [Concomitant]
     Active Substance: DUPILUMAB
     Indication: Hypersensitivity
     Dosage: 300 MILLIGRAM (START DATE: AT LEAST TWO YEARS)

REACTIONS (5)
  - Hypersensitivity [Unknown]
  - Needle track marks [Not Recovered/Not Resolved]
  - Device difficult to use [Unknown]
  - Skin discolouration [Unknown]
  - Erythema [Unknown]

NARRATIVE: CASE EVENT DATE: 20240101
